FAERS Safety Report 16063428 (Version 1)
Quarter: 2019Q1

REPORT INFORMATION
  Report Type: Spontaneous
  Country: US (occurrence: US)
  Receive Date: 20190312
  Receipt Date: 20190312
  Transmission Date: 20190418
  Serious: Yes (Other)
  Sender: FDA-Public Use
  Company Number: US-BRACCO-2019US01064

PATIENT
  Age: 91 Year
  Sex: Female

DRUGS (1)
  1. IOPAMIDOL [Suspect]
     Active Substance: IOPAMIDOL
     Indication: ANGIOGRAM
     Dosage: 100 ML, SINGLE

REACTIONS (2)
  - Encephalopathy [Recovered/Resolved]
  - Delirium [Recovered/Resolved]
